FAERS Safety Report 7639265-1 (Version None)
Quarter: 2011Q3

REPORT INFORMATION
  Report Type: 
  Country: None (occurrence: None)
  Receive Date: 20110727
  Receipt Date: 20110719
  Transmission Date: 20111222
  Serious: Yes (Hospitalization)
  Sender: FDA-Public Use
  Company Number: PHHY2011IL65848

PATIENT
  Sex: Female
  Weight: 49.8 kg

DRUGS (1)
  1. ZOLEDRONOC ACID [Suspect]
     Dosage: 5 MG, UNK
     Route: 042
     Dates: start: 20110220

REACTIONS (4)
  - WHITE BLOOD CELL COUNT INCREASED [None]
  - CHILLS [None]
  - SYNCOPE [None]
  - MYALGIA [None]
